FAERS Safety Report 23890303 (Version 2)
Quarter: 2024Q2

REPORT INFORMATION
  Report Type: Report from Study
  Country: US (occurrence: US)
  Receive Date: 20240523
  Receipt Date: 20240606
  Transmission Date: 20240716
  Serious: Yes (Death, Hospitalization, Other)
  Sender: FDA-Public Use
  Company Number: US-002147023-NVSC2022US255481

PATIENT
  Age: 68 Year
  Sex: Female
  Weight: 98.413 kg

DRUGS (7)
  1. TREPROSTINIL [Suspect]
     Active Substance: TREPROSTINIL
     Dosage: 70 NG/KG/ MIN
     Route: 042
     Dates: start: 20221031
  2. TREPROSTINIL [Suspect]
     Active Substance: TREPROSTINIL
     Dosage: 65 NG/KG/MIN CONT
     Route: 042
     Dates: start: 20221031
  3. TREPROSTINIL [Suspect]
     Active Substance: TREPROSTINIL
     Indication: Pulmonary arterial hypertension
     Dosage: 10 NG/KG/MIN, CONT
     Route: 042
     Dates: start: 20221031
  4. TREPROSTINIL [Suspect]
     Active Substance: TREPROSTINIL
     Dosage: 12 NG/KG/MIN, CONT
     Route: 042
  5. TREPROSTINIL [Suspect]
     Active Substance: TREPROSTINIL
     Dosage: 23 NG/KG/MIN, CONT
     Route: 042
  6. TREPROSTINIL [Suspect]
     Active Substance: TREPROSTINIL
     Dosage: 60 NG/KG/MIN, CONT
     Route: 042
     Dates: start: 20221031
  7. AMBRISENTAN [Concomitant]
     Active Substance: AMBRISENTAN
     Indication: Product used for unknown indication
     Dosage: UNK
     Route: 065

REACTIONS (10)
  - Pulmonary hypertension [Fatal]
  - Hypoxia [Unknown]
  - Thrombosis [Unknown]
  - Epistaxis [Unknown]
  - Headache [Recovered/Resolved]
  - Hypotension [Unknown]
  - Dyspnoea [Unknown]
  - Nausea [Recovering/Resolving]
  - Pain in jaw [Unknown]
  - Infusion site erythema [Unknown]

NARRATIVE: CASE EVENT DATE: 20240520
